FAERS Safety Report 9360953 (Version 4)
Quarter: 2013Q3

REPORT INFORMATION
  Report Type: Spontaneous
  Country: JP (occurrence: JP)
  Receive Date: 20130621
  Receipt Date: 20130910
  Transmission Date: 20140515
  Serious: Yes (Hospitalization)
  Sender: FDA-Public Use
  Company Number: JP-PFIZER INC-2013183764

PATIENT
  Age: 49 Year
  Sex: Female
  Weight: 63 kg

DRUGS (3)
  1. LYRICA [Suspect]
     Indication: NEURALGIA
     Dosage: 150 MG/DAY
     Route: 048
     Dates: start: 20130510, end: 20130606
  2. TASUOMIN [Suspect]
     Indication: BREAST CANCER
     Dosage: UNK
     Route: 048
     Dates: start: 20130418, end: 20130606
  3. LUMIOS [Suspect]
     Indication: HYPERTROPHIC SCAR
     Dosage: 100 MG, 2X/DAY
     Route: 048
     Dates: start: 20130510, end: 20130606

REACTIONS (2)
  - Hepatic function abnormal [Recovered/Resolved]
  - Eosinophil count increased [Recovered/Resolved]
